FAERS Safety Report 11871792 (Version 2)
Quarter: 2016Q1

REPORT INFORMATION
  Report Type: Spontaneous
  Country: US (occurrence: US)
  Receive Date: 20151228
  Receipt Date: 20160223
  Transmission Date: 20160526
  Serious: Yes (Hospitalization, Other)
  Sender: FDA-Public Use
  Company Number: US-PFIZER INC-2015464498

PATIENT
  Age: 54 Year
  Sex: Female
  Weight: 109 kg

DRUGS (3)
  1. CELEBREX [Suspect]
     Active Substance: CELECOXIB
     Indication: ARTHRITIS
     Dosage: 200 MG, 2X/DAY
     Route: 048
  2. CELEBREX [Suspect]
     Active Substance: CELECOXIB
     Indication: SJOGREN^S SYNDROME
  3. TESSALON [Suspect]
     Active Substance: BENZONATATE
     Indication: LUNG DISORDER
     Dosage: 200 MG, 3X/DAY,  AS NEEDED
     Route: 048

REACTIONS (10)
  - Pneumonia [Unknown]
  - Blood lactic acid increased [Unknown]
  - Back pain [Unknown]
  - Sepsis [Unknown]
  - Influenza [Unknown]
  - Hypoxia [Unknown]
  - Radicular pain [Unknown]
  - Urinary tract infection [Unknown]
  - Nerve compression [Unknown]
  - White blood cell count increased [Unknown]

NARRATIVE: CASE EVENT DATE: 201412
